FAERS Safety Report 8060586-5 (Version None)
Quarter: 2012Q1

REPORT INFORMATION
  Report Type: 
  Country: None (occurrence: None)
  Receive Date: 20120120
  Receipt Date: 20120118
  Transmission Date: 20120608
  Serious: Yes (Other)
  Sender: FDA-Public Use
  Company Number: JP-CELGENEUS-087-21880-10113126

PATIENT
  Sex: Male

DRUGS (2)
  1. REVLIMID [Suspect]
     Indication: MULTIPLE MYELOMA
     Dosage: 25 MILLIGRAM
     Route: 048
     Dates: start: 20101007, end: 20101021
  2. DEXAMETHASONE TAB [Concomitant]
     Indication: MULTIPLE MYELOMA
     Dosage: 19 MILLIGRAM
     Route: 041
     Dates: start: 20101013, end: 20101013

REACTIONS (3)
  - CONSTIPATION [None]
  - SEPSIS [None]
  - TUBULOINTERSTITIAL NEPHRITIS [None]
